FAERS Safety Report 5504124-7 (Version None)
Quarter: 2007Q4

REPORT INFORMATION
  Report Type: 
  Country: None (occurrence: None)
  Receive Date: 20071101
  Receipt Date: 20071022
  Transmission Date: 20080405
  Serious: Yes (Other)
  Sender: FDA-Public Use
  Company Number: GB-KINGPHARMUSA00001-K200701399

PATIENT

DRUGS (1)
  1. EPIPEN [Suspect]
     Dosage: .3 MG, SINGLE

REACTIONS (8)
  - ACCIDENTAL EXPOSURE [None]
  - CAPILLARY NAIL REFILL TEST [None]
  - HYPOKINESIA [None]
  - PAIN IN EXTREMITY [None]
  - PALLOR [None]
  - PARALYSIS [None]
  - SENSORY LOSS [None]
  - TENDERNESS [None]
